FAERS Safety Report 8920863 (Version 1)
Quarter: 2012Q4

REPORT INFORMATION
  Report Type: 
  Country: US (occurrence: US)
  Receive Date: 20121122
  Receipt Date: 20121122
  Transmission Date: 20130627
  Serious: No
  Sender: FDA-Public Use
  Company Number: US-PFIZER INC-2012289570

PATIENT

DRUGS (4)
  1. VFEND [Suspect]
     Indication: ASPERGILLOSIS
     Dosage: 200 mg, 2x/day
  2. VFEND [Interacting]
     Dosage: 300 mg, 2x/day
  3. SENSIPAR [Interacting]
  4. TRACLEER [Interacting]
     Dosage: UNK

REACTIONS (2)
  - Inhibitory drug interaction [Unknown]
  - Drug level decreased [Unknown]
